FAERS Safety Report 8698621 (Version 2)
Quarter: 2012Q4

REPORT INFORMATION
  Report Type: 
  Country: US (occurrence: US)
  Receive Date: 20120802
  Receipt Date: 20120913
  Transmission Date: 20130627
  Serious: Yes (Death)
  Sender: FDA-Public Use
  Company Number: US-PFIZER INC-2012185413

PATIENT
  Age: 71 Year
  Sex: Male

DRUGS (2)
  1. SUTENT [Suspect]
     Indication: RENAL CANCER
     Dosage: 37.5 mg, daily
     Route: 048
     Dates: start: 20111011
  2. SUTENT [Suspect]
     Indication: CARCINOID TUMOUR
     Dosage: 12.5 mg, UNK
     Dates: start: 20111103, end: 20120706

REACTIONS (2)
  - Disease progression [Fatal]
  - Renal cancer [Fatal]
